FAERS Safety Report 23913897 (Version 3)
Quarter: 2024Q2

REPORT INFORMATION
  Report Type: Report from Study
  Country: JP (occurrence: JP)
  Receive Date: 20240529
  Receipt Date: 20240619
  Transmission Date: 20240716
  Serious: Yes (Hospitalization, Other)
  Sender: FDA-Public Use
  Company Number: JP-GSKJP-JP2024JPN064265

PATIENT
  Age: 70 Year
  Sex: Female
  Weight: 51.8 kg

DRUGS (8)
  1. BOTULINUM TOXIN TYPE A [Suspect]
     Active Substance: BOTULINUM TOXIN TYPE A
     Indication: Muscle spasticity
     Dosage: TIME INTERVAL: AS NECESSARY: 500 IU, SINGLE
     Route: 030
     Dates: start: 20231220, end: 20231220
  2. BOTULINUM TOXIN TYPE A [Suspect]
     Active Substance: BOTULINUM TOXIN TYPE A
     Indication: Muscle spasticity
     Dosage: TIME INTERVAL: AS NECESSARY: 500 IU, SINGLE
     Route: 030
     Dates: start: 20240313, end: 20240313
  3. BOTULINUM TOXIN TYPE A [Suspect]
     Active Substance: BOTULINUM TOXIN TYPE A
     Indication: Muscle spasticity
     Dosage: TIME INTERVAL: AS NECESSARY: UNK
     Route: 065
     Dates: start: 20221029, end: 20221029
  4. BOTULINUM TOXIN TYPE A [Suspect]
     Active Substance: BOTULINUM TOXIN TYPE A
     Indication: Muscle spasticity
     Dosage: TIME INTERVAL: AS NECESSARY: 400 IU, SINGLE
     Route: 065
     Dates: start: 20230517, end: 20230517
  5. BOTULINUM TOXIN TYPE A [Suspect]
     Active Substance: BOTULINUM TOXIN TYPE A
     Indication: Muscle spasticity
     Dosage: TIME INTERVAL: AS NECESSARY: 600 IU, SINGLE
     Route: 030
     Dates: start: 20230823, end: 20230823
  6. ESCITALOPRAM [Concomitant]
     Active Substance: ESCITALOPRAM OXALATE
     Indication: Product used for unknown indication
  7. ALFACALCIDOL [Concomitant]
     Active Substance: ALFACALCIDOL
     Indication: Product used for unknown indication
  8. AMLODIPINE BESYLATE [Concomitant]
     Active Substance: AMLODIPINE BESYLATE
     Indication: Product used for unknown indication

REACTIONS (2)
  - Thalamus haemorrhage [Unknown]
  - Cerebrovascular disorder [Unknown]
